FAERS Safety Report 11595558 (Version 1)
Quarter: 2015Q4

REPORT INFORMATION
  Report Type: Spontaneous
  Country: CH (occurrence: CH)
  Receive Date: 20151006
  Receipt Date: 20151006
  Transmission Date: 20160304
  Serious: Yes (Hospitalization)
  Sender: FDA-Public Use
  Company Number: CH-PFIZER INC-2015326613

PATIENT
  Age: 83 Year
  Sex: Female

DRUGS (2)
  1. CORDARONE [Suspect]
     Active Substance: AMIODARONE HYDROCHLORIDE
     Dosage: 1 DF, DAILY
     Route: 048
  2. CORDARONE [Suspect]
     Active Substance: AMIODARONE HYDROCHLORIDE
     Dosage: 2 DF, DAILY
     Route: 048

REACTIONS (2)
  - Cholelithiasis [Unknown]
  - Mixed liver injury [Recovering/Resolving]

NARRATIVE: CASE EVENT DATE: 20150814
